FAERS Safety Report 5202896-2 (Version None)
Quarter: 2006Q4

REPORT INFORMATION
  Report Type: 
  Country: None (occurrence: None)
  Receive Date: 20061016
  Receipt Date: 20060906
  Transmission Date: 20070319
  Serious: No
  Sender: FDA-Public Use
  Company Number: 2006SP003199

PATIENT
  Age: 18 Year
  Sex: Female
  Weight: 61.2356 kg

DRUGS (9)
  1. LUNESTA [Suspect]
     Indication: INSOMNIA
     Dosage: 3 MG; HS; ORAL
     Route: 048
     Dates: start: 20060601
  2. ROZEREM [Suspect]
     Indication: INSOMNIA
     Dosage: HS; ORAL
     Route: 048
     Dates: start: 20060601
  3. LEVAQUIN [Concomitant]
  4. SINGULAIR [Concomitant]
  5. CYMBALTA [Concomitant]
  6. LEXAPRO [Concomitant]
  7. TRAMADOL HCL [Concomitant]
  8. XANAX [Concomitant]
  9. ACETAMINOPHEN W/PROPOXYPHENE [Concomitant]

REACTIONS (5)
  - HEADACHE [None]
  - INSOMNIA [None]
  - NAUSEA [None]
  - PAIN [None]
  - SOMNOLENCE [None]
